FAERS Safety Report 6729711-X (Version None)
Quarter: 2010Q2

REPORT INFORMATION
  Report Type: 
  Country: None (occurrence: None)
  Receive Date: 20100512
  Receipt Date: 20100430
  Transmission Date: 20101027
  Serious: Yes (Hospitalization)
  Sender: FDA-Public Use
  Company Number: A-NJ2010-36223

PATIENT
  Age: 81 Year
  Sex: Male

DRUGS (3)
  1. TRACLEER [Suspect]
     Indication: PULMONARY ARTERIAL HYPERTENSION
     Dosage: ORAL
     Route: 048
     Dates: start: 20100314
  2. CALCIUM CHANNEL BLOCKERS [Concomitant]
  3. WARFARIN SODIUM [Concomitant]

REACTIONS (1)
  - CELLULITIS [None]
